FAERS Safety Report 5014002-8 (Version None)
Quarter: 2006Q2

REPORT INFORMATION
  Report Type: 
  Country: None (occurrence: None)
  Receive Date: 20060526
  Receipt Date: 20060526
  Transmission Date: 20061013
  Serious: Yes (Life-Threatening, Disabling)
  Sender: FDA-Public Use
  Company Number: None

PATIENT
  Age: 40 Year
  Sex: Male
  Weight: 135 kg

DRUGS (1)
  1. ELEVA 100     100MG       ALPHAPHARM AUSTRALIA [Suspect]
     Indication: DEPRESSION
     Dosage: 3 TABS/ DAILY BY MOUTH   300MG/DAY
     Route: 048

REACTIONS (1)
  - SUICIDE ATTEMPT [None]
